FAERS Safety Report 6559781 (Version 3)
Quarter: 2013Q2

REPORT INFORMATION
  Report Type: Report from Study
  Country: TW (occurrence: TW)
  Receive Date: 20080224
  Receipt Date: 20130619
  Transmission Date: 20140414
  Serious: Yes (Other)
  Sender: FDA-Public Use
  Company Number: PHHO2008TW02250

PATIENT
  Age: 79 Year
  Sex: Male
  Weight: 52 kg

DRUGS (1)
  1. ZOLEDRONATE [Suspect]
     Indication: PROSTATE CANCER
     Dosage: 3.5 MG PER MONTH
     Route: 042
     Dates: start: 20060920, end: 20071114

REACTIONS (4)
  - Osteonecrosis of jaw [Unknown]
  - Toothache [Unknown]
  - Gingival swelling [Unknown]
  - Periodontitis [Unknown]
